FAERS Safety Report 7364201-5 (Version None)
Quarter: 2011Q1

REPORT INFORMATION
  Report Type: 
  Country: None (occurrence: None)
  Receive Date: 20110321
  Receipt Date: 20110314
  Transmission Date: 20110831
  Serious: Yes (Hospitalization, Other)
  Sender: FDA-Public Use
  Company Number: US-TEVA-260668USA

PATIENT
  Sex: Female

DRUGS (2)
  1. PROPOXYPHENE NAPSYLATE AND ACETAMINOPHEN [Suspect]
     Dosage: 100MG/650MG
     Route: 048
  2. WARFARIN SODIUM [Concomitant]

REACTIONS (2)
  - AORTIC ANEURYSM [None]
  - PULMONARY EMBOLISM [None]
